FAERS Safety Report 8541124-7 (Version None)
Quarter: 2012Q3

REPORT INFORMATION
  Report Type: 
  Country: None (occurrence: None)
  Receive Date: 20120726
  Receipt Date: 20110816
  Transmission Date: 20120928
  Serious: No
  Sender: FDA-Public Use
  Company Number: US-ASTRAZENECA-2011SE49279

PATIENT
  Sex: Female

DRUGS (2)
  1. SEROQUEL [Suspect]
     Indication: POST-TRAUMATIC STRESS DISORDER
     Dosage: 50-100MG DAILY
     Route: 048
     Dates: start: 20070101
  2. RESTASIS [Concomitant]

REACTIONS (3)
  - CATARACT [None]
  - OFF LABEL USE [None]
  - LACRIMATION INCREASED [None]
